FAERS Safety Report 23427781 (Version 2)
Quarter: 2024Q1

REPORT INFORMATION
  Report Type: Report from Study
  Country: GR (occurrence: GR)
  Receive Date: 20240122
  Receipt Date: 20240228
  Transmission Date: 20240410
  Serious: Yes (Hospitalization, Other)
  Sender: FDA-Public Use
  Company Number: GR-ABBVIE-5577598

PATIENT
  Age: 71 Year
  Sex: Male
  Weight: 68 kg

DRUGS (10)
  1. AZACITIDINE [Suspect]
     Active Substance: AZACITIDINE
     Indication: Acute myeloid leukaemia
     Dosage: 130 MILLIGRAM
     Route: 058
     Dates: start: 20231023, end: 20231029
  2. VENETOCLAX [Suspect]
     Active Substance: VENETOCLAX
     Indication: Acute myeloid leukaemia
     Dosage: 200 MILLIGRAM, QD (DURATION 14 DAYS)
     Route: 048
     Dates: start: 20231023, end: 20231105
  3. ATORVASTATIN CALCIUM [Concomitant]
     Active Substance: ATORVASTATIN CALCIUM
     Indication: Coronary artery disease
     Dosage: 40 MILLIGRAM, QD
     Route: 065
     Dates: start: 20170731
  4. NITRONG [Concomitant]
     Active Substance: NITROGLYCERIN
     Indication: Coronary artery disease
     Dosage: 5 MILLIGRAM, QD
     Route: 065
     Dates: start: 20170731
  5. FLUCONAZOLE [Concomitant]
     Active Substance: FLUCONAZOLE
     Indication: Antifungal prophylaxis
     Dosage: 200 MILLIGRAM, QD
     Route: 065
     Dates: start: 20230731
  6. METOPROLOL [Concomitant]
     Active Substance: METOPROLOL
     Indication: Coronary artery disease
     Dosage: 12.5 MILLIGRAM, QD
     Route: 065
     Dates: start: 20170731
  7. PERINDOPRIL [Concomitant]
     Active Substance: PERINDOPRIL
     Indication: Coronary artery disease
     Dosage: 5 MILLIGRAM, QD
     Route: 065
     Dates: start: 20230731
  8. PLAVIX [Concomitant]
     Active Substance: CLOPIDOGREL BISULFATE
     Indication: Coronary artery disease
     Dosage: 75 MILLIGRAM, QD
     Route: 065
     Dates: start: 20170731
  9. Pantium [Concomitant]
     Indication: Coronary artery disease
     Dosage: 40 MILLIGRAM, QD
     Route: 065
     Dates: start: 20170731
  10. Pantium [Concomitant]
     Indication: Gastritis

REACTIONS (2)
  - Febrile neutropenia [Recovered/Resolved]
  - Genital lesion [Recovered/Resolved]

NARRATIVE: CASE EVENT DATE: 20231114
